FAERS Safety Report 6875561-3 (Version None)
Quarter: 2010Q3

REPORT INFORMATION
  Report Type: 
  Country: None (occurrence: None)
  Receive Date: 20100727
  Receipt Date: 20070712
  Transmission Date: 20110219
  Serious: Yes (Hospitalization, Other)
  Sender: FDA-Public Use
  Company Number: US-PFIZER INC-2006150702

PATIENT
  Sex: Female
  Weight: 106.6 kg

DRUGS (7)
  1. CELEBREX [Suspect]
     Indication: OSTEOARTHRITIS
     Route: 048
     Dates: start: 20040107, end: 20040509
  2. VIOXX [Suspect]
     Indication: OSTEOARTHRITIS
     Route: 048
     Dates: start: 20010101, end: 20040117
  3. DARVOCET [Concomitant]
     Indication: PAIN
     Dates: start: 20010101, end: 20060101
  4. PROPOXYPHENE HCL [Concomitant]
     Indication: PAIN
     Dates: start: 19940909, end: 20050824
  5. HYZAAR [Concomitant]
     Indication: HYPERTENSION
     Dates: start: 20040114, end: 20060113
  6. ZOCOR [Concomitant]
     Indication: BLOOD CHOLESTEROL INCREASED
     Dates: start: 20040409, end: 20051204
  7. LOPID [Concomitant]
     Indication: HYPERTENSION
     Dates: start: 20040212, end: 20051031

REACTIONS (1)
  - MYOCARDIAL INFARCTION [None]
